FAERS Safety Report 9841019 (Version 1)
Quarter: 2014Q1

REPORT INFORMATION
  Report Type: Spontaneous
  Country: US (occurrence: US)
  Receive Date: 20140124
  Receipt Date: 20140124
  Transmission Date: 20141002
  Serious: No
  Sender: FDA-Public Use
  Company Number: US-VERTEX PHARMACEUTICALS INC-2014-000316

PATIENT
  Age: 64 Year
  Sex: Male
  Weight: 79.37 kg

DRUGS (3)
  1. INCIVEK [Suspect]
     Indication: HEPATITIS C
     Dosage: 2 DF, TID
     Dates: start: 201401
  2. COPEGUS [Suspect]
     Indication: HEPATITIS C
     Dosage: 3 DF, BID
     Dates: start: 201401
  3. PEGASYS [Suspect]
     Indication: HEPATITIS C
     Dosage: 180 ?G, QW
     Route: 058
     Dates: start: 201401

REACTIONS (2)
  - Influenza like illness [Not Recovered/Not Resolved]
  - Rash [Not Recovered/Not Resolved]
